FAERS Safety Report 9402508 (Version 1)
Quarter: 2013Q3

REPORT INFORMATION
  Report Type: Spontaneous
  Country: US (occurrence: None)
  Receive Date: 20130712
  Receipt Date: 20130712
  Transmission Date: 20140515
  Serious: Yes (Hospitalization)
  Sender: FDA-Public Use
  Company Number: None

PATIENT
  Age: 75 Year
  Sex: Male
  Weight: 84.82 kg

DRUGS (1)
  1. BACLOFEN [Suspect]
     Dosage: POSSIBLY SINCE 2009 (S/P STROKE) QHS
     Route: 048
     Dates: start: 2009

REACTIONS (4)
  - Musculoskeletal disorder [None]
  - Weight bearing difficulty [None]
  - Dysstasia [None]
  - Muscle spasms [None]
